FAERS Safety Report 5655203-5 (Version None)
Quarter: 2008Q1

REPORT INFORMATION
  Report Type: 
  Country: None (occurrence: None)
  Receive Date: 20080307
  Receipt Date: 20080228
  Transmission Date: 20080703
  Serious: Yes (Other)
  Sender: FDA-Public Use
  Company Number: US-ROCHE-550045

PATIENT
  Age: 45 Year
  Sex: Female
  Weight: 88.5 kg

DRUGS (11)
  1. KLONOPIN [Suspect]
     Indication: POST-TRAUMATIC STRESS DISORDER
     Dosage: FREQUENCY IN THE MORNING AND IN THE EVENING PRIOR TO BEDTIME
     Route: 065
     Dates: start: 19930101
  2. LYRICA [Interacting]
     Indication: FIBROMYALGIA
     Dosage: OTHER INDICATION: SEVERE NERVE PAIN
     Route: 065
     Dates: start: 20071001
  3. LYRICA [Interacting]
     Route: 065
     Dates: start: 20071101
  4. SEROQUEL [Interacting]
     Indication: MOOD SWINGS
     Dosage: 300 MG IN THE MORNING AND 600 MG IN THE EVENING PRIOR TO BEDTIME
     Route: 065
     Dates: start: 19970101
  5. REMERON [Interacting]
     Indication: DEPRESSION
     Dosage: 60 MG IN THE EVENING PRIOR TO BEDTIME
     Route: 065
     Dates: start: 20010101
  6. CYMBALTA [Interacting]
     Indication: DEPRESSION
     Dosage: 60 MG IN THE EVENING PRIOR TO BEDTIME
     Route: 065
     Dates: start: 20070801
  7. AMBIEN [Interacting]
     Indication: INSOMNIA
     Dosage: 10 MG IN THE EVENING PRIOR TO BEDTIME
     Route: 065
     Dates: start: 20071201
  8. GLIPIZIDE [Concomitant]
  9. LIPITOR [Concomitant]
  10. DETROL LA [Concomitant]
  11. NEXIUM [Concomitant]

REACTIONS (2)
  - DRUG INTERACTION [None]
  - HALLUCINATION [None]
